FAERS Safety Report 5450872-7 (Version None)
Quarter: 2007Q3

REPORT INFORMATION
  Report Type: 
  Country: None (occurrence: None)
  Receive Date: 20070913
  Receipt Date: 20070907
  Transmission Date: 20080115
  Serious: Yes (Other)
  Sender: FDA-Public Use
  Company Number: PHRM2007FR02076

PATIENT
  Age: 85 Year
  Sex: Male

DRUGS (13)
  1. ZOMETA [Suspect]
     Indication: INTERVERTEBRAL DISC COMPRESSION
     Dosage: 1 DF, ONCE/SINGLE
     Route: 042
     Dates: start: 20070723, end: 20070723
  2. ENANTONE [Concomitant]
     Indication: PROSTATE CANCER METASTATIC
  3. LOVENOX [Suspect]
  4. NOCTRAN 10 [Suspect]
  5. CASODEX [Concomitant]
  6. DEBRIDAT [Concomitant]
  7. LASIX [Concomitant]
  8. DULCOLAX [Concomitant]
  9. VITAMIN B-12 [Concomitant]
  10. IMPORTAL [Concomitant]
  11. REVITALOSE C [Concomitant]
  12. DURAGESIC-100 [Concomitant]
  13. SOLU-MEDROL [Concomitant]

REACTIONS (3)
  - CONDITION AGGRAVATED [None]
  - PROSTATE CANCER METASTATIC [None]
  - THROMBOCYTOPENIA [None]
